FAERS Safety Report 16690503 (Version 2)
Quarter: 2019Q3

REPORT INFORMATION
  Report Type: Spontaneous
  Country: US (occurrence: US)
  Receive Date: 20190810
  Receipt Date: 20190909
  Transmission Date: 20191004
  Serious: No
  Sender: FDA-Public Use
  Company Number: PHEH2019US032703

PATIENT
  Sex: Male

DRUGS (1)
  1. TRAVATAN Z [Suspect]
     Active Substance: TRAVOPROST
     Indication: PRODUCT USED FOR UNKNOWN INDICATION
     Dosage: UNK, QHS
     Route: 047
     Dates: start: 2001

REACTIONS (6)
  - Ocular hyperaemia [Unknown]
  - Eye pain [Unknown]
  - Eye swelling [Unknown]
  - Intraocular pressure increased [Unknown]
  - Eyelid disorder [Unknown]
  - Eye discharge [Unknown]
